FAERS Safety Report 6387882-1 (Version None)
Quarter: 2009Q3

REPORT INFORMATION
  Report Type: 
  Country: None (occurrence: None)
  Receive Date: 20090930
  Receipt Date: 20090924
  Transmission Date: 20100115
  Serious: Yes (Hospitalization)
  Sender: FDA-Public Use
  Company Number: 220002L09ITA

PATIENT
  Age: 13 Year
  Sex: Female
  Weight: 68.8 kg

DRUGS (4)
  1. SOMATROPIN (SOMATROPIN) [Suspect]
     Indication: HYPOPITUITARISM
     Dosage: 0.033 MG/KG, 6 IN 1 WEEKS, SUBCUTANEOUS
     Route: 058
  2. L-THYROXINE (LEVOTHYROXINE/00068001/) [Concomitant]
  3. HYDROCORTISONE (HYDROCORTISONE/00028601/) [Concomitant]
  4. ANTIDIURETIC HORMONE ANALOGUE (VASOPRESSIN INJECTION) [Concomitant]

REACTIONS (5)
  - BILE OUTPUT ABNORMAL [None]
  - HYPERCHOLESTEROLAEMIA [None]
  - HYPERTRIGLYCERIDAEMIA [None]
  - PANCREATITIS ACUTE [None]
  - SPLENOMEGALY [None]
